FAERS Safety Report 6754375-9 (Version None)
Quarter: 2010Q2

REPORT INFORMATION
  Report Type: 
  Country: None (occurrence: None)
  Receive Date: 20100601
  Receipt Date: 20100518
  Transmission Date: 20101027
  Serious: Yes (Death)
  Sender: FDA-Public Use
  Company Number: 546949

PATIENT
  Age: 42 Year
  Sex: Male

DRUGS (3)
  1. PHENYTOIN [Suspect]
  2. FLUCONAZOLE [Suspect]
  3. CIPROFLOXACIN [Suspect]

REACTIONS (16)
  - ACUTE HEPATIC FAILURE [None]
  - ATRIAL FIBRILLATION [None]
  - BRAIN STEM HAEMORRHAGE [None]
  - CEREBRAL DISORDER [None]
  - COAGULOPATHY [None]
  - GASTROINTESTINAL HAEMORRHAGE [None]
  - HEPATIC ENCEPHALOPATHY [None]
  - HEPATITIS ACUTE [None]
  - HYPOGLYCAEMIA [None]
  - IDIOSYNCRATIC DRUG REACTION [None]
  - LUNG CONSOLIDATION [None]
  - METABOLIC ACIDOSIS [None]
  - NERVOUS SYSTEM DISORDER [None]
  - PULMONARY CONGESTION [None]
  - PULMONARY OEDEMA [None]
  - SHOCK [None]
